FAERS Safety Report 9608146 (Version 1)
Quarter: 2013Q4

REPORT INFORMATION
  Report Type: Spontaneous
  Country: US (occurrence: None)
  Receive Date: 20131007
  Receipt Date: 20131007
  Transmission Date: 20140711
  Serious: Yes (Death)
  Sender: FDA-Public Use
  Company Number: None

PATIENT
  Age: 92 Year
  Sex: Female
  Weight: 65.7 kg

DRUGS (2)
  1. COUMADIN [Suspect]
     Dosage: 1 PILL
     Route: 048
  2. ASPIRIN [Suspect]
     Dosage: 1 PILL
     Route: 048

REACTIONS (2)
  - Upper gastrointestinal haemorrhage [None]
  - Hypovolaemic shock [None]
